FAERS Safety Report 13125818 (Version 2)
Quarter: 2017Q2

REPORT INFORMATION
  Report Type: Report from Study
  Country: US (occurrence: US)
  Receive Date: 20170118
  Receipt Date: 20170613
  Transmission Date: 20170830
  Serious: Yes (Hospitalization)
  Sender: FDA-Public Use
  Company Number: US-JNJFOC-20170115415

PATIENT
  Age: 63 Year
  Sex: Male
  Weight: 121 kg

DRUGS (8)
  1. IMBRUVICA [Suspect]
     Active Substance: IBRUTINIB
     Indication: CHRONIC LYMPHOCYTIC LEUKAEMIA
     Route: 048
     Dates: end: 20161228
  2. ALLOPURINOL. [Concomitant]
     Active Substance: ALLOPURINOL
  3. ALTACE [Concomitant]
     Active Substance: RAMIPRIL
  4. LASIX [Concomitant]
     Active Substance: FUROSEMIDE
  5. PREVACID [Concomitant]
     Active Substance: LANSOPRAZOLE
  6. IRON [Concomitant]
     Active Substance: IRON
  7. ASA [Concomitant]
     Active Substance: ASPIRIN
  8. KCL [Concomitant]
     Active Substance: POTASSIUM CHLORIDE

REACTIONS (5)
  - Thyroid function test abnormal [Unknown]
  - Malaise [Not Recovered/Not Resolved]
  - Atrial fibrillation [Not Recovered/Not Resolved]
  - Hypotension [Not Recovered/Not Resolved]
  - Sinus tachycardia [Unknown]

NARRATIVE: CASE EVENT DATE: 20170106
